FAERS Safety Report 19451733 (Version 3)
Quarter: 2021Q3

REPORT INFORMATION
  Report Type: Spontaneous
  Country: US (occurrence: US)
  Receive Date: 20210623
  Receipt Date: 20210731
  Transmission Date: 20211014
  Serious: Yes (Other)
  Sender: FDA-Public Use
  Company Number: US-DRREDDYS-SPO/USA/21/0136693

PATIENT
  Age: 23 Year
  Sex: Female

DRUGS (2)
  1. ZENATANE [Suspect]
     Active Substance: ISOTRETINOIN
     Dosage: EVERYDAY QD
     Dates: start: 202012
  2. ZENATANE [Suspect]
     Active Substance: ISOTRETINOIN
     Indication: PRODUCT USED FOR UNKNOWN INDICATION
     Dosage: RMA ISSUE DATE: 11/MAY/2021 12:00:00 AM, 29/MARCH/2021 12:00:00 AM, 1/FEBRUARY/2021 12:00:00 AM, 24/
     Dates: start: 20201124, end: 20210608

REACTIONS (6)
  - Exposure during pregnancy [Unknown]
  - Product quality issue [Unknown]
  - Rash [Not Recovered/Not Resolved]
  - Abortion induced [Unknown]
  - Eczema [Unknown]
  - Drug ineffective [Unknown]

NARRATIVE: CASE EVENT DATE: 20210413
